FAERS Safety Report 5123480-5 (Version None)
Quarter: 2006Q4

REPORT INFORMATION
  Report Type: 
  Country: None (occurrence: None)
  Receive Date: 20061009
  Receipt Date: 20060929
  Transmission Date: 20070319
  Serious: Yes (Other)
  Sender: FDA-Public Use
  Company Number: JP-ABBOTT-06P-087-0345602-00

PATIENT
  Age: 36 Year
  Sex: Female
  Weight: 45 kg

DRUGS (11)
  1. CLARITHROMYCIN [Suspect]
     Indication: BRONCHITIS ACUTE
     Route: 048
     Dates: start: 20040824, end: 20040828
  2. ACETAMINOPHEN [Suspect]
     Indication: PYREXIA
     Route: 048
     Dates: start: 20040822, end: 20040823
  3. ACETAMINOPHEN [Suspect]
     Route: 048
     Dates: start: 20040824, end: 20040828
  4. IBUPROFEN [Concomitant]
     Indication: PYREXIA
     Route: 048
     Dates: start: 20040821, end: 20040823
  5. PL [Concomitant]
     Indication: INFLAMMATION
     Route: 048
     Dates: start: 20040821, end: 20040828
  6. LEVOFLOXACIN [Concomitant]
     Indication: BRONCHITIS ACUTE
     Route: 048
     Dates: start: 20040821, end: 20040823
  7. LACTOBACILLUS SPOROGENES [Concomitant]
     Indication: PROPHYLAXIS AGAINST DIARRHOEA
     Route: 048
     Dates: start: 20040821, end: 20040823
  8. 20% GLUCOSE [Concomitant]
     Indication: BRONCHITIS ACUTE
     Route: 042
     Dates: start: 20040822, end: 20040822
  9. NEOLAMIN 3B INJ. [Concomitant]
     Indication: BRONCHITIS ACUTE
     Route: 042
     Dates: start: 20040822, end: 20040822
  10. ASCORBIC ACID [Concomitant]
     Indication: BRONCHITIS ACUTE
     Route: 042
     Dates: start: 20040822, end: 20040822
  11. SOLITA T3 NUMBER 3 [Concomitant]
     Indication: BRONCHITIS ACUTE
     Route: 042
     Dates: start: 20040822, end: 20040822

REACTIONS (13)
  - ALANINE AMINOTRANSFERASE INCREASED [None]
  - ARTHRALGIA [None]
  - ASPARTATE AMINOTRANSFERASE INCREASED [None]
  - BILIRUBIN CONJUGATED INCREASED [None]
  - BLOOD ALKALINE PHOSPHATASE INCREASED [None]
  - BLOOD BILIRUBIN INCREASED [None]
  - CHOLESTASIS [None]
  - COUGH [None]
  - GAMMA-GLUTAMYLTRANSFERASE INCREASED [None]
  - MALAISE [None]
  - PRODUCTIVE COUGH [None]
  - RASH [None]
  - VOMITING [None]
